FAERS Safety Report 19758116 (Version 2)
Quarter: 2021Q4

REPORT INFORMATION
  Report Type: Spontaneous
  Country: JP (occurrence: JP)
  Receive Date: 20210827
  Receipt Date: 20211201
  Transmission Date: 20220303
  Serious: Yes (Hospitalization, Disabling)
  Sender: FDA-Public Use
  Company Number: JP-BAYER-2021-197362

PATIENT
  Age: 64 Year
  Sex: Male
  Weight: 63.6 kg

DRUGS (14)
  1. STIVARGA [Suspect]
     Active Substance: REGORAFENIB
     Indication: Colon cancer
     Dosage: DAILY DOSE 120 MG, 3 CONSECUTIVE WEEKS ADMINISTRATION 1 WEEK WITHDRAWAL
     Dates: start: 20200507, end: 20200514
  2. SYMPROIC [Concomitant]
     Active Substance: NALDEMEDINE
     Indication: Thrombosis
     Dosage: DAILY DOSE 0.2 MG
     Route: 048
  3. SYMPROIC [Concomitant]
     Active Substance: NALDEMEDINE
     Indication: Embolism
  4. LINZESS [Concomitant]
     Active Substance: LINACLOTIDE
     Indication: Thrombosis
     Dosage: DAILY DOSE 0.25 MG
     Route: 048
  5. LINZESS [Concomitant]
     Active Substance: LINACLOTIDE
     Indication: Embolism
  6. EDOXABAN TOSYLATE [Concomitant]
     Active Substance: EDOXABAN TOSYLATE
     Indication: Thrombosis
     Dosage: DAILY DOSE 60 MG
     Route: 048
  7. EDOXABAN TOSYLATE [Concomitant]
     Active Substance: EDOXABAN TOSYLATE
     Indication: Embolism
  8. VONOPRAZAN FUMARATE [Concomitant]
     Active Substance: VONOPRAZAN FUMARATE
     Indication: Thrombosis
     Dosage: DAILY DOSE 10 MG
     Route: 048
  9. VONOPRAZAN FUMARATE [Concomitant]
     Active Substance: VONOPRAZAN FUMARATE
     Indication: Embolism
  10. BROTIZOLAM DOC [Concomitant]
     Indication: Thrombosis
     Dosage: DAILY DOSE 0.25 MG
  11. BROTIZOLAM DOC [Concomitant]
     Indication: Embolism
  12. ZYPREXA [Concomitant]
     Active Substance: OLANZAPINE
     Indication: Prophylaxis of nausea and vomiting
     Dosage: DAILY DOSE 5 MG
     Route: 048
  13. GABAPENTIN [Concomitant]
     Active Substance: GABAPENTIN
     Indication: Thrombosis
     Dosage: DAILY DOSE 400 MG
     Route: 048
  14. GABAPENTIN [Concomitant]
     Active Substance: GABAPENTIN
     Indication: Embolism

REACTIONS (3)
  - Anastomotic complication [Not Recovered/Not Resolved]
  - Tumour perforation [Not Recovered/Not Resolved]
  - Peritonitis bacterial [None]

NARRATIVE: CASE EVENT DATE: 20200515
